FAERS Safety Report 8872980 (Version 5)
Quarter: 2014Q2

REPORT INFORMATION
  Report Type: Report from Study
  Country: FR (occurrence: FR)
  Receive Date: 20121030
  Receipt Date: 20140402
  Transmission Date: 20141212
  Serious: Yes (Death, Hospitalization)
  Sender: FDA-Public Use
  Company Number: FR-ROCHE-566180

PATIENT
  Age: 67 Year
  Sex: Female
  Weight: 68 kg

DRUGS (6)
  1. RITUXIMAB [Suspect]
     Indication: B-CELL LYMPHOMA
     Dosage: 17 MAY 2007- 665 MG, 13 JUN 2007- 665 MG, 1 AUG 2007- 665 MG, 26 DEC 2007- 665 MG, 7 MAY 2008- 600MG
     Route: 042
  2. LEVOTHYROX [Concomitant]
     Indication: HYPOTHYROIDISM
     Route: 048
  3. PYOSTACINE [Concomitant]
     Indication: EAR PAIN
     Route: 048
     Dates: start: 20080223, end: 20080229
  4. PREDNISOLONE SODIUM METASULFOBENZOATE [Concomitant]
     Indication: EAR PAIN
     Route: 048
     Dates: start: 20080223, end: 20080229
  5. CYCLOPHOSPHAMIDE [Concomitant]
     Indication: B-CELL LYMPHOMA
     Dosage: 17 MAY 2007: 1329 MG; 13 JUN 2007: 1350 MG; 1 AUG 2007: 1050 MG
     Route: 065
     Dates: start: 20070517
  6. FLUDARABINE [Concomitant]
     Dosage: 17 MAY 2007- 132.75 MG, 13 JUN 2007- 210 MG, 1 AUG 2007- 150 MG
     Route: 065
     Dates: start: 20070517

REACTIONS (6)
  - Death [Fatal]
  - Herpes zoster oticus [Recovered/Resolved with Sequelae]
  - VIIth nerve paralysis [Not Recovered/Not Resolved]
  - Herpes simplex meningoencephalitis [Recovering/Resolving]
  - Urinary tract infection [Recovered/Resolved]
  - Bronchopneumonia [Recovered/Resolved]
